FAERS Safety Report 7319264-X (Version None)
Quarter: 2011Q1

REPORT INFORMATION
  Report Type: 
  Country: None (occurrence: None)
  Receive Date: 20110228
  Receipt Date: 20100114
  Transmission Date: 20110831
  Serious: No
  Sender: FDA-Public Use
  Company Number: A0837431A

PATIENT
  Age: 50 Year
  Sex: Male
  Weight: 159.1 kg

DRUGS (10)
  1. NIACIN [Concomitant]
  2. CYMBALTA [Concomitant]
     Dosage: 60MG PER DAY
     Route: 048
  3. TOPAMAX [Concomitant]
     Dosage: 100MG AT NIGHT
     Route: 048
  4. WELLBUTRIN XL [Concomitant]
     Dosage: 400MG PER DAY
     Route: 048
  5. OXYCONTIN [Concomitant]
     Dosage: 40MG TWICE PER DAY
     Route: 048
  6. LAMICTAL [Suspect]
     Indication: BIPOLAR DISORDER
     Dosage: 75MG UNKNOWN
     Route: 048
     Dates: start: 20091214
  7. DIOVAN [Concomitant]
     Dosage: 80MG PER DAY
     Route: 048
  8. MULTI-VITAMIN [Concomitant]
  9. TERAZOSIN [Concomitant]
     Dosage: 10MG PER DAY
     Route: 048
  10. LEVOTHYROXINE SODIUM [Concomitant]
     Dosage: 1.25MG PER DAY
     Route: 048

REACTIONS (4)
  - PARANOIA [None]
  - ABNORMAL DREAMS [None]
  - NIGHTMARE [None]
  - TREATMENT NONCOMPLIANCE [None]
